FAERS Safety Report 20054359 (Version 4)
Quarter: 2022Q1

REPORT INFORMATION
  Report Type: Spontaneous
  Country: ES (occurrence: ES)
  Receive Date: 20211110
  Receipt Date: 20220106
  Transmission Date: 20220424
  Serious: Yes (Hospitalization)
  Sender: FDA-Public Use
  Company Number: ES-JNJFOC-20211052329

PATIENT
  Age: 30 Year
  Sex: Male

DRUGS (14)
  1. FENTANYL [Suspect]
     Active Substance: FENTANYL
     Indication: Product used for unknown indication
     Dosage: 100.00 MCG/HR
     Route: 062
  2. FENTANYL [Suspect]
     Active Substance: FENTANYL
  3. FENTANYL [Suspect]
     Active Substance: FENTANYL
  4. FENTANYL [Suspect]
     Active Substance: FENTANYL
  5. FENTANYL [Suspect]
     Active Substance: FENTANYL
  6. FENTANYL [Suspect]
     Active Substance: FENTANYL
  7. FENTANYL [Suspect]
     Active Substance: FENTANYL
  8. FENTANYL [Suspect]
     Active Substance: FENTANYL
     Indication: Product used for unknown indication
     Dosage: UNKNOWN
     Route: 062
  9. FENTANYL [Suspect]
     Active Substance: FENTANYL
  10. FENTANYL [Suspect]
     Active Substance: FENTANYL
  11. FENTANYL [Suspect]
     Active Substance: FENTANYL
  12. FENTANYL [Suspect]
     Active Substance: FENTANYL
  13. FENTANYL [Suspect]
     Active Substance: FENTANYL
  14. FENTANYL [Suspect]
     Active Substance: FENTANYL

REACTIONS (4)
  - Hospitalisation [Unknown]
  - Product adhesion issue [Unknown]
  - Product dose omission issue [Unknown]
  - Pain [Unknown]
